FAERS Safety Report 8394909-4 (Version None)
Quarter: 2012Q2

REPORT INFORMATION
  Report Type: 
  Country: None (occurrence: None)
  Receive Date: 20120530
  Receipt Date: 20110517
  Transmission Date: 20120825
  Serious: No
  Sender: FDA-Public Use
  Company Number: US-GLAXOSMITHKLINE-A0929182A

PATIENT
  Age: 54 Year
  Sex: Male

DRUGS (1)
  1. FLOLAN [Suspect]
     Indication: PULMONARY ARTERIAL HYPERTENSION
     Dosage: 8NGKM SEE DOSAGE TEXT
     Route: 042
     Dates: start: 20100415

REACTIONS (1)
  - PRURITUS GENERALISED [None]
